FAERS Safety Report 11500100 (Version 1)
Quarter: 2015Q3

REPORT INFORMATION
  Report Type: Spontaneous
  Country: US (occurrence: None)
  Receive Date: 20150910
  Receipt Date: 20150910
  Transmission Date: 20151125
  Serious: Yes (Other)
  Sender: FDA-Public Use
  Company Number: 001974131A

PATIENT
  Age: 13 Year
  Sex: Female

DRUGS (3)
  1. PROACTIVPLUS SKIN SMOOTHING EXFOLIATOR [Suspect]
     Active Substance: BENZOYL PEROXIDE
     Indication: ACNE
     Dosage: ONCE; DERMAL, INHALATION
     Route: 055
     Dates: start: 201507
  2. PROACTIV PLUS PORE TARGETING TREATMENT [Suspect]
     Active Substance: BENZOYL PEROXIDE
     Indication: ACNE
     Dosage: ONCE; DERMAL, INHALATION
     Route: 055
     Dates: start: 201507
  3. PROACTIV PLUS COMPLEXION PERFECTING HYDRATOR [Suspect]
     Active Substance: SALICYLIC ACID
     Indication: ACNE
     Dosage: ONCE; DERMAL, INHALATION
     Route: 055
     Dates: start: 201507

REACTIONS (3)
  - Chest discomfort [None]
  - Wheezing [None]
  - Exposure via inhalation [None]

NARRATIVE: CASE EVENT DATE: 201507
